FAERS Safety Report 5768192-X (Version None)
Quarter: 2008Q2

REPORT INFORMATION
  Report Type: 
  Country: None (occurrence: None)
  Receive Date: 20080612
  Receipt Date: 20080603
  Transmission Date: 20081010
  Serious: Yes (Other)
  Sender: FDA-Public Use
  Company Number: FR-AMGEN-UK284473

PATIENT
  Sex: Female

DRUGS (1)
  1. MIMPARA [Suspect]
     Indication: PARATHYROID TUMOUR MALIGNANT
     Route: 065

REACTIONS (1)
  - CONGESTIVE CARDIOMYOPATHY [None]
